FAERS Safety Report 9821927 (Version 2)
Quarter: 2014Q1

REPORT INFORMATION
  Report Type: Spontaneous
  Country: US (occurrence: US)
  Receive Date: 20140116
  Receipt Date: 20140210
  Transmission Date: 20141002
  Serious: Yes (Other)
  Sender: FDA-Public Use
  Company Number: US-BAYER-2014-002899

PATIENT
  Age: 42 Year
  Sex: Female

DRUGS (1)
  1. MIRENA [Suspect]
     Indication: CONTRACEPTION
     Dosage: 20 ?G, CONT
     Route: 015
     Dates: start: 201109

REACTIONS (15)
  - Post procedural haemorrhage [None]
  - Cystitis [None]
  - Weight increased [None]
  - Oedema [None]
  - Abdominal distension [None]
  - Abdominal pain lower [None]
  - Headache [Not Recovered/Not Resolved]
  - Anxiety [None]
  - Depression [None]
  - Mood altered [None]
  - Hypomenorrhoea [None]
  - Blister [Not Recovered/Not Resolved]
  - Pain of skin [None]
  - Increased tendency to bruise [None]
  - Malaise [None]
